FAERS Safety Report 9099720 (Version 2)
Quarter: 2013Q3

REPORT INFORMATION
  Report Type: Report from Study
  Country: US (occurrence: US)
  Receive Date: 20130214
  Receipt Date: 20130910
  Transmission Date: 20140515
  Serious: Yes (Other)
  Sender: FDA-Public Use
  Company Number: US-ROCHE-1189078

PATIENT
  Sex: 0

DRUGS (2)
  1. BEVACIZUMAB [Suspect]
     Indication: EPENDYMOMA
     Dosage: ON DAY 1 COURSE OF 28 DAYS
     Route: 042
  2. LAPATINIB [Suspect]
     Indication: EPENDYMOMA
     Route: 048

REACTIONS (4)
  - Rash [Unknown]
  - Hypokalaemia [Unknown]
  - Alanine aminotransferase increased [Unknown]
  - Diarrhoea [Unknown]
